FAERS Safety Report 9018366 (Version 1)
Quarter: 2013Q1

REPORT INFORMATION
  Report Type: Spontaneous
  Country: US (occurrence: None)
  Receive Date: 20130111
  Receipt Date: 20130111
  Transmission Date: 20140127
  Serious: Yes (Other)
  Sender: FDA-Public Use
  Company Number: None

PATIENT
  Age: 54 Year
  Sex: Male
  Weight: 97.52 kg

DRUGS (1)
  1. AVELOX [Suspect]
     Route: 048
     Dates: start: 20121119, end: 20121126

REACTIONS (6)
  - Depression [None]
  - Back pain [None]
  - Treatment noncompliance [None]
  - Mental disorder [None]
  - Abasia [None]
  - Dysstasia [None]
